FAERS Safety Report 8473237-2 (Version None)
Quarter: 2012Q2

REPORT INFORMATION
  Report Type: 
  Country: None (occurrence: None)
  Receive Date: 20120627
  Receipt Date: 20120620
  Transmission Date: 20120825
  Serious: Yes (Congenital Anomaly)
  Sender: FDA-Public Use
  Company Number: AU-MERCK-1206USA03535B1

PATIENT
  Age: 0 Day

DRUGS (2)
  1. PRINIVIL [Suspect]
     Route: 064
  2. ATENOLOL [Suspect]
     Route: 064

REACTIONS (1)
  - MULTIPLE CONGENITAL ABNORMALITIES [None]
